FAERS Safety Report 9725678 (Version 1)
Quarter: 2013Q4

REPORT INFORMATION
  Report Type: Spontaneous
  Country: US (occurrence: None)
  Receive Date: 20131202
  Receipt Date: 20131202
  Transmission Date: 20140711
  Serious: Yes (Disabling, Other)
  Sender: FDA-Public Use
  Company Number: None

PATIENT
  Age: 57 Year
  Sex: Female
  Weight: 105.24 kg

DRUGS (12)
  1. LEVOFLOXACIN [Suspect]
     Indication: ACUTE SINUSITIS
     Dosage: 10 PILLS -TAKE 1 (ONE) DAILY
     Route: 048
     Dates: start: 20131031, end: 20131106
  2. LEVOFLOXACIN [Suspect]
     Indication: OTITIS MEDIA ACUTE
     Dosage: 10 PILLS -TAKE 1 (ONE) DAILY
     Route: 048
     Dates: start: 20131031, end: 20131106
  3. LEVOFLOXACIN [Suspect]
     Indication: UPPER RESPIRATORY TRACT INFECTION
     Dosage: 10 PILLS -TAKE 1 (ONE) DAILY
     Route: 048
     Dates: start: 20131031, end: 20131106
  4. ALDACTAZIDE [Concomitant]
  5. POTASSIUM [Concomitant]
  6. CARELIZAM [Concomitant]
  7. PERCOCET [Concomitant]
  8. METHADONE [Concomitant]
  9. OXYCONTIN [Concomitant]
  10. NEXIUM [Concomitant]
  11. MELOXICAM [Concomitant]
  12. VITAMIN D [Concomitant]

REACTIONS (12)
  - Impaired self-care [None]
  - Abasia [None]
  - Hypoacusis [None]
  - Visual acuity reduced [None]
  - Pain in extremity [None]
  - Pain in extremity [None]
  - Arthralgia [None]
  - Headache [None]
  - Musculoskeletal disorder [None]
  - Abnormal dreams [None]
  - Decreased appetite [None]
  - Dysstasia [None]
